FAERS Safety Report 7006695-0 (Version None)
Quarter: 2010Q3

REPORT INFORMATION
  Report Type: 
  Country: None (occurrence: None)
  Receive Date: 20100921
  Receipt Date: 20100920
  Transmission Date: 20110219
  Serious: Yes (Other)
  Sender: FDA-Public Use
  Company Number: US-BRISTOL-MYERS SQUIBB COMPANY-15238025

PATIENT
  Age: 81 Year
  Sex: Female

DRUGS (4)
  1. ORENCIA [Suspect]
     Indication: RHEUMATOID ARTHRITIS
     Dosage: 3 DOSES 3 WEEKS APART;LAST DOSE-2 WEEKS AGO
     Dates: start: 20100702
  2. PREDNISONE [Concomitant]
  3. DIAZID [Concomitant]
     Dosage: 1DF-37.5/25
  4. OMEPRAZOLE [Concomitant]

REACTIONS (2)
  - CHOLELITHIASIS [None]
  - LIVER FUNCTION TEST ABNORMAL [None]
